FAERS Safety Report 10090179 (Version 1)
Quarter: 2014Q2

REPORT INFORMATION
  Report Type: Spontaneous
  Country: US (occurrence: US)
  Receive Date: 20140421
  Receipt Date: 20140421
  Transmission Date: 20141212
  Serious: Yes (Hospitalization)
  Sender: FDA-Public Use
  Company Number: US-GLAXOSMITHKLINE-A1027323A

PATIENT
  Age: 47 Year
  Sex: Female
  Weight: 61.8 kg

DRUGS (4)
  1. FLOLAN [Suspect]
     Indication: PULMONARY ARTERIAL HYPERTENSION
     Dosage: 20NGKM CONTINUOUS
     Route: 042
     Dates: start: 19991013
  2. DRESSING [Suspect]
     Indication: PRODUCT USED FOR UNKNOWN INDICATION
  3. REVATIO [Concomitant]
  4. COUMADIN [Concomitant]

REACTIONS (2)
  - Device related infection [Recovered/Resolved]
  - Pruritus [Unknown]
